FAERS Safety Report 10742654 (Version 2)
Quarter: 2015Q1

REPORT INFORMATION
  Report Type: Spontaneous
  Country: BR (occurrence: BR)
  Receive Date: 20150127
  Receipt Date: 20150205
  Transmission Date: 20150721
  Serious: No
  Sender: FDA-Public Use
  Company Number: BR-PFIZER INC-2015029091

PATIENT
  Sex: Female

DRUGS (2)
  1. LIPITOR [Suspect]
     Active Substance: ATORVASTATIN CALCIUM
     Indication: VENOUS OCCLUSION
     Dosage: 40 MG STRENGTH
     Route: 065
     Dates: start: 201207, end: 201501
  2. LIPITOR [Suspect]
     Active Substance: ATORVASTATIN CALCIUM
     Dosage: 20 MG STRENGTH
     Route: 048
     Dates: start: 201501

REACTIONS (2)
  - Skin discolouration [Recovering/Resolving]
  - Drug ineffective for unapproved indication [Unknown]

NARRATIVE: CASE EVENT DATE: 2013
